FAERS Safety Report 9517830 (Version 1)
Quarter: 2013Q3

REPORT INFORMATION
  Report Type: Report from Study
  Country: US (occurrence: US)
  Receive Date: 20130912
  Receipt Date: 20130912
  Transmission Date: 20140515
  Serious: Yes (Other)
  Sender: FDA-Public Use
  Company Number: US-BRISTOL-MYERS SQUIBB COMPANY-19364132

PATIENT
  Age: 67 Year
  Sex: Male
  Weight: 96.5 kg

DRUGS (1)
  1. IPILIMUMAB [Suspect]
     Indication: MALIGNANT MELANOMA
     Dosage: LAST DOSE : 05MAR2013?962MG
     Route: 042
     Dates: start: 20130212

REACTIONS (1)
  - Squamous cell carcinoma [Recovered/Resolved]
